FAERS Safety Report 9581206 (Version 2)
Quarter: 2014Q1

REPORT INFORMATION
  Report Type: Report from Study
  Country: BR (occurrence: BR)
  Receive Date: 20131002
  Receipt Date: 20140128
  Transmission Date: 20141002
  Serious: Yes (Hospitalization, Other)
  Sender: FDA-Public Use
  Company Number: BR-ROCHE-1281980

PATIENT
  Sex: Female
  Weight: 80 kg

DRUGS (4)
  1. PEGASYS [Suspect]
     Indication: HEPATITIS C
     Route: 065
     Dates: start: 2011, end: 201205
  2. ATENOLOL [Concomitant]
     Indication: HYPERTENSION
     Route: 065
  3. DIPYRONE [Concomitant]
     Indication: SPINAL PAIN
     Dosage: AS REQUIRED
     Route: 065
  4. DIPYRONE [Concomitant]
     Indication: HEADACHE

REACTIONS (2)
  - Nodule [Not Recovered/Not Resolved]
  - Hepatitis C [Not Recovered/Not Resolved]
